FAERS Safety Report 13775504 (Version 1)
Quarter: 2017Q3

REPORT INFORMATION
  Report Type: Spontaneous
  Country: US (occurrence: US)
  Receive Date: 20170720
  Receipt Date: 20170720
  Transmission Date: 20171127
  Serious: No
  Sender: FDA-Public Use
  Company Number: US-SHIRE-US201714447

PATIENT
  Sex: Female

DRUGS (1)
  1. VYVANSE [Suspect]
     Active Substance: LISDEXAMFETAMINE DIMESYLATE
     Indication: PRODUCT USED FOR UNKNOWN INDICATION
     Dosage: ONE HALF 40 MG, 1X/DAY:QD
     Route: 048

REACTIONS (3)
  - Prescribed underdose [Not Recovered/Not Resolved]
  - No adverse event [Not Recovered/Not Resolved]
  - Product quality issue [Unknown]
